FAERS Safety Report 4782775-5 (Version None)
Quarter: 2005Q3

REPORT INFORMATION
  Report Type: 
  Country: None (occurrence: None)
  Receive Date: 20050914
  Receipt Date: 20040907
  Transmission Date: 20060218
  Serious: Yes (Hospitalization)
  Sender: FDA-Public Use
  Company Number: 163-20785-04050323

PATIENT
  Age: 50 Year
  Sex: Female

DRUGS (15)
  1. THALOMID [Suspect]
     Indication: MULTIPLE MYELOMA
     Dosage: 50 MG, QHS, ORAL;  200 MG, QD, ORAL
     Route: 048
     Dates: start: 20020222
  2. THALOMID [Suspect]
     Indication: MULTIPLE MYELOMA
     Dosage: 50 MG, QHS, ORAL;  200 MG, QD, ORAL
     Route: 048
     Dates: start: 20030401
  3. VELCADE [Suspect]
     Indication: MULTIPLE MYELOMA
     Dosage: 1.3 MG/M2, DAYS 1,4,8,11 Q 28 DAYS, INTRAVENOUS
     Route: 042
     Dates: start: 20030311, end: 20040702
  4. DEXAMETHASONE [Suspect]
     Indication: MULTIPLE MYELOMA
     Dosage: 4 DAYS PER MONTH
     Dates: start: 20020222
  5. TEQUIN [Concomitant]
  6. WELLBUTRIN [Concomitant]
  7. KLONOPIN [Concomitant]
  8. ZOLOFT [Concomitant]
  9. ESTRACE [Concomitant]
  10. INDERAL [Concomitant]
  11. POSTURE-D CALCIUM (CALCIUM PHOSPHATE) [Concomitant]
  12. CENTRUM VITAMIN (CENTRUM) [Concomitant]
  13. ATIVAN [Concomitant]
  14. XANAX [Concomitant]
  15. AREDIA [Concomitant]

REACTIONS (4)
  - DISEASE PROGRESSION [None]
  - PLASMACYTOMA [None]
  - PNEUMONIA [None]
  - PNEUMONIA STAPHYLOCOCCAL [None]
